FAERS Safety Report 4595319-8 (Version None)
Quarter: 2005Q1

REPORT INFORMATION
  Report Type: 
  Country: None (occurrence: None)
  Receive Date: 20050223
  Receipt Date: 20050214
  Transmission Date: 20050727
  Serious: No
  Sender: FDA-Public Use
  Company Number: 2005CG00254

PATIENT
  Age: 74 Year
  Sex: Male
  Weight: 100 kg

DRUGS (5)
  1. CRESTOR [Suspect]
     Indication: HYPERCHOLESTEROLAEMIA
     Dosage: 10 MG QD PO
     Route: 048
     Dates: start: 20040401, end: 20041104
  2. KARDEGIC [Concomitant]
  3. AMLOR [Concomitant]
  4. COAPROVEL [Concomitant]
  5. GLUCOPHAGE [Concomitant]

REACTIONS (7)
  - ABASIA [None]
  - ARTHRALGIA [None]
  - DECREASED APPETITE [None]
  - FATIGUE [None]
  - MYALGIA [None]
  - RED BLOOD CELL SEDIMENTATION RATE INCREASED [None]
  - WEIGHT DECREASED [None]
